FAERS Safety Report 12214276 (Version 1)
Quarter: 2016Q1

REPORT INFORMATION
  Report Type: Report from Study
  Country: GB (occurrence: GB)
  Receive Date: 20160328
  Receipt Date: 20160328
  Transmission Date: 20160526
  Serious: Yes (Hospitalization)
  Sender: FDA-Public Use
  Company Number: GB-ABBVIE-16K-167-1586311-00

PATIENT
  Age: 63 Year
  Sex: Male

DRUGS (8)
  1. HUMIRA [Suspect]
     Active Substance: ADALIMUMAB
     Indication: PSORIASIS
     Route: 058
     Dates: start: 20091015, end: 20111212
  2. HUMIRA [Suspect]
     Active Substance: ADALIMUMAB
     Route: 058
     Dates: start: 20130115
  3. DOVOBET [Concomitant]
     Active Substance: BETAMETHASONE\CALCIPOTRIENE
     Indication: PRODUCT USED FOR UNKNOWN INDICATION
     Dates: start: 20090218
  4. CLINDAMYCIN [Concomitant]
     Active Substance: CLINDAMYCIN\CLINDAMYCIN PHOSPHATE
     Indication: PRODUCT USED FOR UNKNOWN INDICATION
     Dates: start: 20120927, end: 20121126
  5. BENZYLPENICILLIN [Concomitant]
     Active Substance: PENICILLIN G
     Indication: PRODUCT USED FOR UNKNOWN INDICATION
     Dates: start: 20121010, end: 20121126
  6. METRONIDAZOLE. [Concomitant]
     Active Substance: METRONIDAZOLE
     Indication: PRODUCT USED FOR UNKNOWN INDICATION
     Dates: start: 20121010, end: 20121126
  7. CIPROFLOXACIN. [Concomitant]
     Active Substance: CIPROFLOXACIN
     Indication: PRODUCT USED FOR UNKNOWN INDICATION
     Dates: start: 20120927, end: 20121126
  8. FUMARIC ACID [Concomitant]
     Active Substance: FUMARIC ACID
     Indication: PRODUCT USED FOR UNKNOWN INDICATION
     Dates: start: 20081007

REACTIONS (13)
  - Peripheral ischaemia [Recovered/Resolved]
  - Deep vein thrombosis [Unknown]
  - Pain in extremity [Not Recovered/Not Resolved]
  - Rhabdomyolysis [Unknown]
  - Muscular weakness [Unknown]
  - Peripheral coldness [Not Recovered/Not Resolved]
  - Acute kidney injury [Unknown]
  - Peripheral artery occlusion [Unknown]
  - Skin discolouration [Recovered/Resolved]
  - Mobility decreased [Not Recovered/Not Resolved]
  - Pulmonary embolism [Recovered/Resolved]
  - Blood creatinine decreased [Unknown]
  - Hypoaesthesia [Unknown]

NARRATIVE: CASE EVENT DATE: 20150621
